FAERS Safety Report 5124425-4 (Version None)
Quarter: 2006Q4

REPORT INFORMATION
  Report Type: 
  Country: None (occurrence: None)
  Receive Date: 20061010
  Receipt Date: 20061002
  Transmission Date: 20070319
  Serious: Yes (Hospitalization)
  Sender: FDA-Public Use
  Company Number: DE-ALLERGAN-0605902US

PATIENT
  Sex: Male

DRUGS (1)
  1. BOTOX [Suspect]
     Indication: TORTICOLLIS
     Dosage: 170 UNITS, SINGLE
     Route: 030

REACTIONS (4)
  - ASPIRATION [None]
  - DYSPHAGIA [None]
  - DYSPNOEA [None]
  - RESPIRATORY FAILURE [None]
